FAERS Safety Report 10545068 (Version 2)
Quarter: 2015Q1

REPORT INFORMATION
  Report Type: Spontaneous
  Country: US (occurrence: US)
  Receive Date: 20141027
  Receipt Date: 20150330
  Transmission Date: 20150720
  Serious: No
  Sender: FDA-Public Use
  Company Number: US-PFIZER INC-2014292127

PATIENT
  Age: 56 Year
  Sex: Male
  Weight: 86 kg

DRUGS (10)
  1. CELLCEPT [Concomitant]
     Active Substance: MYCOPHENOLATE MOFETIL\MYCOPHENOLATE MOFETIL HYDROCHLORIDE
     Indication: PROPHYLAXIS AGAINST TRANSPLANT REJECTION
     Dosage: 500 MG, 2X/DAY (250 MG 2 OF THEM TWICE A DAY)
     Dates: start: 201307
  2. RAPAMUNE [Suspect]
     Active Substance: SIROLIMUS
     Indication: PROPHYLAXIS AGAINST TRANSPLANT REJECTION
     Dosage: 0.5
     Dates: start: 201406, end: 20140630
  3. CYCLOSPORIN [Suspect]
     Active Substance: CYCLOSPORINE
     Indication: PROPHYLAXIS AGAINST TRANSPLANT REJECTION
     Dosage: 100 MG, UNK
     Dates: start: 201307, end: 20140710
  4. MAGNESIUM [Concomitant]
     Active Substance: MAGNESIUM
     Indication: MINERAL SUPPLEMENTATION
     Dosage: 400 MG, 2X/DAY
     Dates: start: 201303
  5. CALCIUM [Concomitant]
     Active Substance: CALCIUM
     Dosage: 400 MG, 2X/DAY
     Dates: start: 201405
  6. NORVASC [Concomitant]
     Active Substance: AMLODIPINE BESYLATE
     Dosage: 10 MG, DAILY (ONE TABLET IN MORNING)
     Dates: start: 201307
  7. KEPPRA [Concomitant]
     Active Substance: LEVETIRACETAM
     Indication: SEIZURE
     Dosage: 750 MG, 2X/DAY
     Dates: start: 201404
  8. CYCLOSPORIN [Suspect]
     Active Substance: CYCLOSPORINE
     Dosage: 25 MG, UNK
     Dates: start: 201307, end: 20140710
  9. PROGRAF [Suspect]
     Active Substance: TACROLIMUS\TACROLIMUS ANHYDROUS
     Indication: PROPHYLAXIS AGAINST TRANSPLANT REJECTION
     Dosage: UNK, 2X/DAY (1MG THREE IN MORNING AND TWO IN EVENING)
     Dates: start: 20140710
  10. OMEPRAZOLE. [Concomitant]
     Active Substance: OMEPRAZOLE
     Dosage: 40 MG, 1X/DAY
     Dates: start: 201103

REACTIONS (5)
  - Rash [Recovered/Resolved]
  - Dandruff [Recovered/Resolved]
  - Off label use [Recovered/Resolved]
  - Rash papular [Recovered/Resolved]
  - Hypertension [Unknown]

NARRATIVE: CASE EVENT DATE: 2014
